FAERS Safety Report 10975829 (Version 1)
Quarter: 2015Q2

REPORT INFORMATION
  Report Type: Report from Study
  Country: BR (occurrence: BR)
  Receive Date: 20150401
  Receipt Date: 20150401
  Transmission Date: 20150821
  Serious: Yes (Other)
  Sender: FDA-Public Use
  Company Number: PHHY2015BR039078

PATIENT
  Age: 81 Year
  Sex: Male
  Weight: 86 kg

DRUGS (5)
  1. SERETIDE [Concomitant]
     Active Substance: FLUTICASONE FUROATE\SALMETEROL XINAFOATE
     Indication: EMPHYSEMA
     Dosage: 2 DF (OF 50/250), QD
     Route: 055
  2. FORASEQ [Suspect]
     Active Substance: BUDESONIDE\FORMOTEROL FUMARATE
     Indication: EMPHYSEMA
     Dosage: 2 INHALATIONS A DAY
     Route: 055
     Dates: start: 201412
  3. ALOPURINOL [Concomitant]
     Active Substance: ALLOPURINOL
     Indication: GOUT
     Dosage: 1 DF, QD
     Route: 048
  4. XARELTO [Concomitant]
     Active Substance: RIVAROXABAN
     Indication: PULMONARY EMBOLISM
     Dosage: 1 DF, QD
     Route: 048
     Dates: start: 201412
  5. DOMPERIDONE [Concomitant]
     Active Substance: DOMPERIDONE
     Indication: GASTRIC DISORDER
     Dosage: 3 DF, QD
     Route: 048
     Dates: start: 201412

REACTIONS (3)
  - Oral candidiasis [Recovered/Resolved]
  - Dysgeusia [Recovered/Resolved]
  - Feeding disorder [Recovering/Resolving]

NARRATIVE: CASE EVENT DATE: 201412
